FAERS Safety Report 13484077 (Version 1)
Quarter: 2017Q2

REPORT INFORMATION
  Report Type: Spontaneous
  Country: US (occurrence: US)
  Receive Date: 20170426
  Receipt Date: 20170426
  Transmission Date: 20170830
  Serious: Yes (Death)
  Sender: FDA-Public Use
  Company Number: US-ROCHE-1925381

PATIENT
  Age: 71 Year
  Sex: Female

DRUGS (1)
  1. ZELBORAF [Suspect]
     Active Substance: VEMURAFENIB
     Indication: MALIGNANT MELANOMA
     Dosage: 960MG TWICE A DAY
     Route: 048
     Dates: start: 20160916, end: 20170422

REACTIONS (1)
  - Death [Fatal]

NARRATIVE: CASE EVENT DATE: 20170422
